FAERS Safety Report 11087167 (Version 2)
Quarter: 2015Q2

REPORT INFORMATION
  Report Type: Spontaneous
  Country: US (occurrence: US)
  Receive Date: 20150504
  Receipt Date: 20150624
  Transmission Date: 20150821
  Serious: No
  Sender: FDA-Public Use
  Company Number: US-PFIZER INC-2015147365

PATIENT
  Age: 35 Year
  Sex: Male
  Weight: 92 kg

DRUGS (6)
  1. CELEBREX [Suspect]
     Active Substance: CELECOXIB
     Indication: PAIN IN EXTREMITY
  2. CELEBREX [Suspect]
     Active Substance: CELECOXIB
     Indication: SPONDYLITIS
     Dosage: 200MG EVERY MORNING
     Dates: start: 20140818, end: 201409
  3. IBUPROFEN. [Suspect]
     Active Substance: IBUPROFEN
     Indication: ARTHRALGIA
     Dosage: UNK, AS NEEDED
     Dates: start: 2014
  4. CELEBREX [Suspect]
     Active Substance: CELECOXIB
     Indication: NECK PAIN
  5. OXYCONTIN [Suspect]
     Active Substance: OXYCODONE HYDROCHLORIDE
     Indication: BACK PAIN
  6. OXYCONTIN [Suspect]
     Active Substance: OXYCODONE HYDROCHLORIDE
     Indication: ARTHRALGIA
     Dosage: 1 DOSE FORM EVERY 12 HOURS
     Dates: start: 20140818, end: 201409

REACTIONS (1)
  - Drug screen false positive [Unknown]

NARRATIVE: CASE EVENT DATE: 20140818
